FAERS Safety Report 5206732-X (Version None)
Quarter: 2007Q1

REPORT INFORMATION
  Report Type: 
  Country: None (occurrence: None)
  Receive Date: 20070109
  Receipt Date: 20061220
  Transmission Date: 20070707
  Serious: Yes (Other)
  Sender: FDA-Public Use
  Company Number: ENT 2006-0180

PATIENT
  Age: 79 Year
  Sex: Male

DRUGS (2)
  1. COMTAN [Suspect]
     Dosage: SEE IMAGE
     Route: 048
     Dates: end: 20060329
  2. COMTAN [Suspect]
     Dosage: SEE IMAGE
     Route: 048
     Dates: start: 20060228

REACTIONS (4)
  - ANXIETY [None]
  - DRUG EFFECT DECREASED [None]
  - HALLUCINATION, VISUAL [None]
  - INSOMNIA [None]
